FAERS Safety Report 9287188 (Version 2)
Quarter: 2013Q4

REPORT INFORMATION
  Report Type: Spontaneous
  Country: US (occurrence: US)
  Receive Date: 20130513
  Receipt Date: 20131030
  Transmission Date: 20140711
  Serious: Yes (Hospitalization)
  Sender: FDA-Public Use
  Company Number: US-B.I. PHARMACEUTICALS,INC./RIDGEFIELD-2013-BI-13185BP

PATIENT
  Sex: Female
  Weight: 154.22 kg

DRUGS (17)
  1. PRADAXA [Suspect]
     Indication: ATRIAL FIBRILLATION
     Dosage: 300 MG
     Route: 048
     Dates: start: 20110713, end: 20120305
  2. ROXICODONE [Concomitant]
     Indication: PAIN
     Route: 048
  3. APRESOLINE [Concomitant]
     Dosage: 75 MG
     Route: 048
  4. IMDUR [Concomitant]
     Dosage: 30 MG
     Route: 048
  5. SENOKOT [Concomitant]
     Dosage: 17.2 MG
     Route: 048
  6. MYCOSTATIN [Concomitant]
     Route: 061
  7. LASIX [Concomitant]
     Dosage: 120 MG
     Route: 048
  8. ASPIRIN [Concomitant]
     Dosage: 81 MG
     Route: 048
  9. COLACE [Concomitant]
     Dosage: 200 MG
     Route: 048
  10. ZESTRIL [Concomitant]
     Dosage: 20 MG
     Route: 048
     Dates: start: 2006
  11. TOPROL XL [Concomitant]
     Dosage: 100 MG
     Route: 048
  12. PRILOSEC OTC [Concomitant]
     Dosage: 20 MG
     Route: 048
  13. CRESTOR [Concomitant]
     Dosage: 20 MG
     Route: 048
  14. TAPAZOLE [Concomitant]
     Dosage: 5 MG
     Route: 048
  15. FERROUS SULFATE [Concomitant]
     Dosage: 975 MG
     Route: 048
  16. ATROVENT [Concomitant]
  17. PROVENTIL [Concomitant]
     Indication: DYSPNOEA

REACTIONS (3)
  - Haemorrhagic anaemia [Unknown]
  - Gastrointestinal haemorrhage [Unknown]
  - Contusion [Unknown]
